FAERS Safety Report 10094060 (Version 1)
Quarter: 2014Q2

REPORT INFORMATION
  Report Type: Report from Study
  Country: US (occurrence: US)
  Receive Date: 20140422
  Receipt Date: 20140422
  Transmission Date: 20141212
  Serious: Yes (Other)
  Sender: FDA-Public Use
  Company Number: US-ROCHE-1383894

PATIENT
  Age: 50 Year
  Sex: Female
  Weight: 67.19 kg

DRUGS (11)
  1. RITUXAN [Suspect]
     Indication: NON-HODGKIN^S LYMPHOMA
     Route: 042
     Dates: start: 200708, end: 20071128
  2. RITUXAN [Suspect]
     Indication: RHEUMATOID ARTHRITIS
     Route: 042
     Dates: start: 200904
  3. FUROSEMIDE [Suspect]
     Indication: FLUID RETENTION
     Route: 048
  4. METHOTREXATE [Suspect]
     Indication: RHEUMATOID ARTHRITIS
     Route: 065
  5. PREDNISONE [Concomitant]
     Route: 048
  6. NEXIUM [Concomitant]
     Route: 065
  7. CYCLOPHOSPHAMIDE [Concomitant]
  8. DOXORUBICIN [Concomitant]
  9. VINCRISTINE [Concomitant]
  10. LISINOPRIL [Concomitant]
     Indication: RHEUMATOID ARTHRITIS
  11. HYDROXYCHLOROQUINE [Concomitant]
     Indication: RHEUMATOID ARTHRITIS
     Route: 048

REACTIONS (10)
  - Blood pressure fluctuation [Unknown]
  - Blood count abnormal [Unknown]
  - Lower respiratory tract infection [Unknown]
  - Cough [Unknown]
  - Chest pain [Unknown]
  - Dyspnoea [Unknown]
  - Blood creatinine increased [Unknown]
  - Peripheral swelling [Unknown]
  - Weight increased [Unknown]
  - Hepatic enzyme increased [Unknown]
